FAERS Safety Report 11494341 (Version 1)
Quarter: 2015Q3

REPORT INFORMATION
  Report Type: Spontaneous
  Country: US (occurrence: US)
  Receive Date: 20150911
  Receipt Date: 20150911
  Transmission Date: 20151125
  Serious: No
  Sender: FDA-Public Use
  Company Number: US-ROCHE-797747

PATIENT
  Sex: Male

DRUGS (3)
  1. RIBAVIRIN. [Suspect]
     Active Substance: RIBAVIRIN
     Indication: CHRONIC HEPATITIS C
     Dosage: DIVIDED DOSES
     Route: 048
  2. TELAPREVIR [Suspect]
     Active Substance: TELAPREVIR
     Indication: CHRONIC HEPATITIS C
     Route: 065
  3. PEGASYS [Suspect]
     Active Substance: PEGINTERFERON ALFA-2A
     Indication: CHRONIC HEPATITIS C
     Dosage: FORM: VIALS
     Route: 058

REACTIONS (10)
  - Insomnia [Unknown]
  - Oral mucosal blistering [Unknown]
  - Weight decreased [Unknown]
  - Decreased appetite [Unknown]
  - Sleep disorder [Unknown]
  - Pyrexia [Unknown]
  - Anaemia [Unknown]
  - Chest pain [Unknown]
  - Rash [Unknown]
  - Alanine aminotransferase increased [Unknown]
